FAERS Safety Report 7472891-1 (Version None)
Quarter: 2011Q1

REPORT INFORMATION
  Report Type: 
  Country: None (occurrence: None)
  Receive Date: 20110302
  Receipt Date: 20101109
  Transmission Date: 20110831
  Serious: Yes (Hospitalization)
  Sender: FDA-Public Use
  Company Number: 163-21880-10101567

PATIENT
  Age: 82 Year
  Sex: Male

DRUGS (2)
  1. DEXAMETHASONE [Suspect]
     Indication: PRODUCT USED FOR UNKNOWN INDICATION
  2. REVLIMID [Suspect]
     Indication: MULTIPLE MYELOMA
     Dosage: 5 MG, DAILY FOR 14 DAYS, PO
     Route: 048
     Dates: start: 20100922

REACTIONS (4)
  - ABDOMINAL PAIN UPPER [None]
  - PERFORATED ULCER [None]
  - HYPOTENSION [None]
  - CONFUSIONAL STATE [None]
